FAERS Safety Report 6179385-4 (Version None)
Quarter: 2009Q2

REPORT INFORMATION
  Report Type: 
  Country: None (occurrence: None)
  Receive Date: 20090505
  Receipt Date: 20090430
  Transmission Date: 20091009
  Serious: Yes (Life-Threatening)
  Sender: FDA-Public Use
  Company Number: A0781489A

PATIENT
  Age: 57 Year
  Sex: Female

DRUGS (8)
  1. ALLI [Suspect]
     Route: 048
     Dates: start: 20090430, end: 20090430
  2. ALBUTEROL [Concomitant]
  3. ADVAIR HFA [Concomitant]
  4. LASIX [Concomitant]
  5. ACIPHEX [Concomitant]
  6. FLEXERIL [Concomitant]
  7. VICODIN [Concomitant]
  8. MOTRIN [Concomitant]

REACTIONS (5)
  - DIZZINESS [None]
  - FEELING ABNORMAL [None]
  - FLATULENCE [None]
  - HALO VISION [None]
  - RECTAL HAEMORRHAGE [None]
